FAERS Safety Report 20070630 (Version 5)
Quarter: 2022Q4

REPORT INFORMATION
  Report Type: Spontaneous
  Country: CA (occurrence: CA)
  Receive Date: 20211115
  Receipt Date: 20221123
  Transmission Date: 20230113
  Serious: Yes (Other)
  Sender: FDA-Public Use
  Company Number: CA-PFIZER INC-202101317301

PATIENT
  Age: 28 Year
  Sex: Female
  Weight: 86 kg

DRUGS (4)
  1. RUXIENCE [Suspect]
     Active Substance: RITUXIMAB-PVVR
     Indication: Granulomatosis with polyangiitis
     Dosage: 1000 MG, DAY 1 AND DAY 14
     Route: 042
     Dates: start: 20211103, end: 20211117
  2. RUXIENCE [Suspect]
     Active Substance: RITUXIMAB-PVVR
     Dosage: 500 MG, SINGLE DOSE
     Route: 042
     Dates: start: 20220505, end: 20220505
  3. RUXIENCE [Suspect]
     Active Substance: RITUXIMAB-PVVR
     Dosage: 500 MG, SINGLE DOSE
     Route: 042
     Dates: start: 20221117, end: 20221117
  4. SEPTRA DS [Concomitant]
     Active Substance: SULFAMETHOXAZOLE\TRIMETHOPRIM
     Indication: Prophylaxis
     Dosage: 1 TAB
     Route: 048
     Dates: start: 20211104

REACTIONS (4)
  - Pruritus [Recovered/Resolved]
  - Erythema [Recovered/Resolved]
  - Sneezing [Recovered/Resolved]
  - Off label use [Unknown]

NARRATIVE: CASE EVENT DATE: 20211103
